FAERS Safety Report 12398333 (Version 1)
Quarter: 2016Q2

REPORT INFORMATION
  Report Type: Other
  Country: CA (occurrence: CA)
  Receive Date: 20160524
  Receipt Date: 20160524
  Transmission Date: 20160815
  Serious: Yes (Other)
  Sender: FDA-Public Use
  Company Number: CA-APOTEX-2015AP010892

PATIENT
  Age: 52 Year
  Sex: Female
  Weight: 68.27 kg

DRUGS (3)
  1. CLINDAMYCIN [Suspect]
     Active Substance: CLINDAMYCIN\CLINDAMYCIN PHOSPHATE
     Indication: TOOTH ABSCESS
     Dosage: 300 MG, QID
     Route: 048
  2. APO-QUETIAPINE [Suspect]
     Active Substance: QUETIAPINE
     Indication: PRODUCT USED FOR UNKNOWN INDICATION
     Route: 065
  3. CIPRO [Concomitant]
     Active Substance: CIPROFLOXACIN HYDROCHLORIDE
     Indication: PRODUCT USED FOR UNKNOWN INDICATION
     Route: 065

REACTIONS (20)
  - Diarrhoea [Recovering/Resolving]
  - Dyspnoea [Recovering/Resolving]
  - Arthralgia [Recovering/Resolving]
  - Palpitations [Recovering/Resolving]
  - Fatigue [Recovering/Resolving]
  - Dizziness [Recovering/Resolving]
  - Heart rate irregular [Recovering/Resolving]
  - Pulmonary congestion [Recovering/Resolving]
  - Anxiety [Recovering/Resolving]
  - Contusion [Recovering/Resolving]
  - Sciatica [Recovering/Resolving]
  - Nausea [Recovering/Resolving]
  - Agitation [Recovering/Resolving]
  - Back pain [Recovering/Resolving]
  - Anger [Recovering/Resolving]
  - Nasal congestion [Recovering/Resolving]
  - Headache [Recovering/Resolving]
  - Depression [Recovering/Resolving]
  - Product contamination [Recovering/Resolving]
  - Vision blurred [Recovering/Resolving]
